FAERS Safety Report 9940905 (Version 1)
Quarter: 2014Q1

REPORT INFORMATION
  Report Type: Spontaneous
  Country: BR (occurrence: BR)
  Receive Date: 20140303
  Receipt Date: 20140303
  Transmission Date: 20141002
  Serious: Yes (Hospitalization)
  Sender: FDA-Public Use
  Company Number: BR-PFIZER INC-2014058232

PATIENT
  Age: 77 Year
  Sex: Female

DRUGS (5)
  1. ATENOLOL [Suspect]
     Indication: HYPERTENSION
     Dosage: 50 MG, DAILY
     Route: 048
     Dates: start: 201306
  2. BRILINTA [Suspect]
     Indication: CHEST PAIN
     Dosage: 90 MG, 2X/DAY
     Route: 048
     Dates: start: 201306
  3. MICARDIS [Concomitant]
     Indication: HYPERTENSION
     Dosage: UNK. DAILY
     Route: 048
  4. SYNTHROID [Concomitant]
     Dosage: UNK, DAILY
     Route: 048
  5. GALVUS [Concomitant]
     Indication: DIABETES MELLITUS
     Dosage: UNK, DAILY
     Route: 048

REACTIONS (1)
  - Gastrointestinal infection [Recovered/Resolved]
